FAERS Safety Report 15696361 (Version 2)
Quarter: 2019Q2

REPORT INFORMATION
  Report Type: Report from Study
  Country: CA (occurrence: CA)
  Receive Date: 20181206
  Receipt Date: 20190610
  Transmission Date: 20190711
  Serious: Yes (Life-Threatening)
  Sender: FDA-Public Use
  Company Number: CA-HLSUS-2018-CA-000601

PATIENT
  Age: 24 Year
  Sex: Male
  Weight: 92 kg

DRUGS (2)
  1. CLOZARIL [Suspect]
     Active Substance: CLOZAPINE
     Indication: SCHIZOAFFECTIVE DISORDER
     Dosage: 200 MG ONCE DAILY AT BEDTIME
     Route: 048
     Dates: start: 20180221, end: 20180411
  2. LITHIUM. [Concomitant]
     Active Substance: LITHIUM
     Dosage: 750 MG AT BEDTIME

REACTIONS (9)
  - Goitre [Unknown]
  - Oropharyngeal pain [Unknown]
  - Oropharyngeal pain [Recovered/Resolved]
  - Orchitis [Unknown]
  - Pyrexia [Unknown]
  - Neutropenia [Unknown]
  - Vomiting [Unknown]
  - Bone pain [Unknown]
  - Abdominal pain [Unknown]

NARRATIVE: CASE EVENT DATE: 20180412
